FAERS Safety Report 10417495 (Version 1)
Quarter: 2014Q3

REPORT INFORMATION
  Report Type: Report from Study
  Country: US (occurrence: US)
  Receive Date: 20140829
  Receipt Date: 20140829
  Transmission Date: 20150326
  Serious: Yes (Hospitalization)
  Sender: FDA-Public Use
  Company Number: US-BIOGENIDEC-2014BI087879

PATIENT
  Age: 46 Year
  Sex: Female

DRUGS (2)
  1. AVONEX [Suspect]
     Active Substance: INTERFERON BETA-1A
     Indication: MULTIPLE SCLEROSIS
     Route: 030
     Dates: start: 20140612, end: 20140703
  2. AVONEX [Suspect]
     Active Substance: INTERFERON BETA-1A
     Indication: MULTIPLE SCLEROSIS
     Route: 030
     Dates: start: 201408

REACTIONS (13)
  - Dyspepsia [Recovered/Resolved with Sequelae]
  - Injection site pain [Not Recovered/Not Resolved]
  - Muscle tightness [Recovered/Resolved with Sequelae]
  - Dyspnoea [Recovered/Resolved]
  - Injection site induration [Not Recovered/Not Resolved]
  - Chest pain [Recovered/Resolved with Sequelae]
  - Hypoaesthesia [Recovered/Resolved with Sequelae]
  - Pain in extremity [Recovered/Resolved]
  - Chest discomfort [Recovered/Resolved with Sequelae]
  - Hyperhidrosis [Recovered/Resolved]
  - Pain [Not Recovered/Not Resolved]
  - Heart rate increased [Unknown]
  - Influenza like illness [Recovered/Resolved]

NARRATIVE: CASE EVENT DATE: 20140815
